FAERS Safety Report 15778581 (Version 2)
Quarter: 2019Q1

REPORT INFORMATION
  Report Type: Spontaneous
  Country: US (occurrence: US)
  Receive Date: 20181231
  Receipt Date: 20190107
  Transmission Date: 20190417
  Serious: No
  Sender: FDA-Public Use
  Company Number: US-PFIZER INC-2018533753

PATIENT
  Sex: Male

DRUGS (1)
  1. EUCRISA [Suspect]
     Active Substance: CRISABOROLE
     Indication: ECZEMA
     Dosage: UNK

REACTIONS (6)
  - Eye inflammation [Unknown]
  - Eye discharge [Unknown]
  - Application site pain [Unknown]
  - Accidental exposure to product [Unknown]
  - Ocular hyperaemia [Unknown]
  - Burning sensation [Unknown]
